FAERS Safety Report 25386210 (Version 2)
Quarter: 2025Q3

REPORT INFORMATION
  Report Type: Spontaneous
  Country: EU (occurrence: EU)
  Receive Date: 20250602
  Receipt Date: 20250717
  Transmission Date: 20251021
  Serious: Yes (Death, Other)
  Sender: BRISTOL-MYERS SQUIBB COMPANY
  Company Number: EU-BRISTOL-MYERS SQUIBB COMPANY-2025-076220

PATIENT
  Age: 7 Decade

DRUGS (1)
  1. LISOCABTAGENE MARALEUCEL [Suspect]
     Active Substance: LISOCABTAGENE MARALEUCEL
     Indication: Product used for unknown indication
     Route: 042

REACTIONS (1)
  - Toxic shock syndrome [Fatal]
